FAERS Safety Report 11643305 (Version 2)
Quarter: 2016Q1

REPORT INFORMATION
  Report Type: Spontaneous
  Country: US (occurrence: US)
  Receive Date: 20151020
  Receipt Date: 20160205
  Transmission Date: 20160525
  Serious: Yes (Hospitalization, Other)
  Sender: FDA-Public Use
  Company Number: US-BAYER-2015-446278

PATIENT
  Age: 34 Year
  Sex: Female
  Weight: 52.15 kg

DRUGS (2)
  1. PRENATAL VITAMINS [Concomitant]
     Active Substance: VITAMINS
  2. MIRENA [Suspect]
     Active Substance: LEVONORGESTREL
     Indication: CONTRACEPTION
     Dosage: 20 MCG/24HR, CONT
     Route: 015
     Dates: start: 201004, end: 20131016

REACTIONS (8)
  - Uterine perforation [Not Recovered/Not Resolved]
  - Drug ineffective [None]
  - Device difficult to use [None]
  - Pregnancy with contraceptive device [None]
  - Pain [Not Recovered/Not Resolved]
  - Injury [Not Recovered/Not Resolved]
  - High risk pregnancy [None]
  - Emotional distress [None]

NARRATIVE: CASE EVENT DATE: 201211
